FAERS Safety Report 21419152 (Version 2)
Quarter: 2022Q4

REPORT INFORMATION
  Report Type: Spontaneous
  Country: US (occurrence: US)
  Receive Date: 20221006
  Receipt Date: 20221021
  Transmission Date: 20230113
  Serious: Yes (Other)
  Sender: FDA-Public Use
  Company Number: US-TEVA-2022-US-2078753

PATIENT
  Age: 12 Year
  Sex: Male

DRUGS (1)
  1. VALPROATE [Suspect]
     Active Substance: VALPROIC ACID
     Indication: Lennox-Gastaut syndrome
     Route: 065

REACTIONS (6)
  - Pancytopenia [Recovering/Resolving]
  - Macrocytosis [Recovering/Resolving]
  - Stomatocytes present [Recovering/Resolving]
  - White blood cell disorder [Recovering/Resolving]
  - Megakaryocytes abnormal [Recovering/Resolving]
  - Toxicity to various agents [Recovering/Resolving]
